FAERS Safety Report 9775947 (Version 3)
Quarter: 2014Q2

REPORT INFORMATION
  Report Type: Report from Study
  Country: US (occurrence: US)
  Receive Date: 20131220
  Receipt Date: 20140513
  Transmission Date: 20141212
  Serious: Yes (Death, Other)
  Sender: FDA-Public Use
  Company Number: US-BAYER-2013-154057

PATIENT
  Age: 50 Year
  Sex: Female

DRUGS (2)
  1. STIVARGA [Suspect]
     Indication: COLON CANCER
     Dosage: 160 MG, QD, 40 MG TABS
     Route: 048
     Dates: start: 20131204, end: 20131212
  2. STIVARGA [Suspect]
     Indication: METASTASES TO LIVER

REACTIONS (4)
  - Fall [None]
  - Colon cancer [Fatal]
  - Pyrexia [None]
  - Decreased appetite [None]
